FAERS Safety Report 11331241 (Version 1)
Quarter: 2015Q3

REPORT INFORMATION
  Report Type: Spontaneous
  Country: US (occurrence: US)
  Receive Date: 20150803
  Receipt Date: 20150803
  Transmission Date: 20151125
  Serious: No
  Sender: FDA-Public Use
  Company Number: GXBR2015US001663

PATIENT
  Age: 64 Year
  Sex: Female
  Weight: 51.25 kg

DRUGS (1)
  1. OMEPRAZOLE DELAYED RELEASE [Suspect]
     Active Substance: OMEPRAZOLE
     Indication: GASTROOESOPHAGEAL REFLUX DISEASE
     Dosage: 40 MG, QD
     Route: 048
     Dates: start: 2014, end: 201506

REACTIONS (3)
  - Breast swelling [Recovering/Resolving]
  - Nausea [Not Recovered/Not Resolved]
  - Abdominal distension [Recovering/Resolving]
